FAERS Safety Report 15737920 (Version 4)
Quarter: 2018Q4

REPORT INFORMATION
  Report Type: Report from Study
  Country: ES (occurrence: ES)
  Receive Date: 20181219
  Receipt Date: 20181221
  Transmission Date: 20190205
  Serious: Yes (Other)
  Sender: FDA-Public Use
  Company Number: ES-TEVA-2018-ES-987262

PATIENT
  Age: 70 Year
  Sex: Female

DRUGS (5)
  1. NEURONTIN 800 MG COMPRIMIDOS RECUBIERTOS CON PELICULA , 500 COMPRIMIDO [Concomitant]
     Dosage: 1600 MILLIGRAM DAILY; 1-0-1
     Route: 048
     Dates: start: 20160804
  2. IRINOTECAN (2719A) [Suspect]
     Active Substance: IRINOTECAN
     Indication: COLORECTAL CANCER RECURRENT
     Dosage: 275 MG (CICLO 14) EL 11/05
     Route: 042
     Dates: start: 20160804, end: 20170511
  3. AFLIBERCEPT (8553A) [Suspect]
     Active Substance: AFLIBERCEPT
     Indication: COLORECTAL CANCER RECURRENT
     Dosage: 336 MG, 14 CICLOS
     Route: 042
     Dates: start: 20160804, end: 20170511
  4. DUROGESIC MATRIX 50 MICROGRAMOS/H PARCHES TRANSDERMICOS , 5 PARCHES [Concomitant]
     Dosage: C/72 H
     Route: 062
     Dates: start: 20160804
  5. SEVIKAR 20 MG/5 MG COMPRIMIDOS RECUBIERTOS CON PELICULA , 28 COMPRIMID [Concomitant]
     Dosage: 1 DOSAGE FORMS DAILY; 1-0-0
     Route: 048
     Dates: start: 20160804

REACTIONS (1)
  - Hepatitis [Recovered/Resolved]

NARRATIVE: CASE EVENT DATE: 20170709
